FAERS Safety Report 24706044 (Version 1)
Quarter: 2024Q4

REPORT INFORMATION
  Report Type: Report from Study
  Country: US (occurrence: US)
  Receive Date: 20241206
  Receipt Date: 20241206
  Transmission Date: 20250115
  Serious: Yes (Hospitalization, Other)
  Sender: ABBVIE
  Company Number: US-ABBVIE-6002672

PATIENT
  Age: 68 Year
  Sex: Female
  Weight: 66.224 kg

DRUGS (1)
  1. HUMIRA [Suspect]
     Active Substance: ADALIMUMAB
     Indication: Rheumatoid arthritis
     Route: 058
     Dates: start: 20190802, end: 202404

REACTIONS (3)
  - Cardiac murmur [Recovered/Resolved]
  - Coronary artery occlusion [Recovered/Resolved]
  - Aortic valve disease [Recovered/Resolved]

NARRATIVE: CASE EVENT DATE: 20240301
